FAERS Safety Report 18738484 (Version 1)
Quarter: 2021Q1

REPORT INFORMATION
  Report Type: Spontaneous
  Country: US (occurrence: US)
  Receive Date: 20210114
  Receipt Date: 20210114
  Transmission Date: 20210419
  Serious: No
  Sender: FDA-Public Use
  Company Number: US-GLAXOSMITHKLINE-US2021000480

PATIENT
  Age: 71 Year
  Sex: Female

DRUGS (1)
  1. NUCALA [Suspect]
     Active Substance: MEPOLIZUMAB
     Indication: EOSINOPHILIC GRANULOMATOSIS WITH POLYANGIITIS
     Dosage: 300 MG, CYC
     Route: 065
     Dates: start: 20200623

REACTIONS (9)
  - Dyspnoea [Recovering/Resolving]
  - Incorrect dose administered [Unknown]
  - Sinus congestion [Recovering/Resolving]
  - Oropharyngeal pain [Recovering/Resolving]
  - Wheezing [Recovering/Resolving]
  - Cough [Recovering/Resolving]
  - Drug ineffective [Unknown]
  - Secretion discharge [Recovering/Resolving]
  - Mucosal discolouration [Recovering/Resolving]

NARRATIVE: CASE EVENT DATE: 20200818
